FAERS Safety Report 23565977 (Version 1)
Quarter: 2024Q1

REPORT INFORMATION
  Report Type: Spontaneous
  Country: US (occurrence: None)
  Receive Date: 20240225
  Receipt Date: 20240225
  Transmission Date: 20240409
  Serious: No
  Sender: FDA-Public Use
  Company Number: None

PATIENT
  Sex: Female

DRUGS (1)
  1. OJJAARA [Suspect]
     Active Substance: MOMELOTINIB DIHYDROCHLORIDE MONOHYDRATE
     Indication: Myelofibrosis

REACTIONS (5)
  - Cerebrovascular accident [None]
  - Emotional disorder [None]
  - Loss of personal independence in daily activities [None]
  - Renal disorder [None]
  - Therapy cessation [None]
